FAERS Safety Report 18910548 (Version 1)
Quarter: 2021Q1

REPORT INFORMATION
  Report Type: Spontaneous
  Country: US (occurrence: US)
  Receive Date: 20210218
  Receipt Date: 20210218
  Transmission Date: 20210420
  Serious: No
  Sender: FDA-Public Use
  Company Number: None

PATIENT
  Age: 46 Year
  Sex: Female
  Weight: 55.35 kg

DRUGS (3)
  1. VITAMIN B12 [Concomitant]
     Active Substance: CYANOCOBALAMIN
  2. NYSTATIN CREAM 15GM [Suspect]
     Active Substance: NYSTATIN
     Indication: TINEA CRURIS
     Route: 061
     Dates: start: 20210202, end: 20210213
  3. VITAMIN D [Concomitant]
     Active Substance: VITAMIN D NOS

REACTIONS (4)
  - Vulvovaginal swelling [None]
  - Swelling [None]
  - Pain [None]
  - Blister [None]

NARRATIVE: CASE EVENT DATE: 20210214
